FAERS Safety Report 4869561-2 (Version None)
Quarter: 2005Q4

REPORT INFORMATION
  Report Type: 
  Country: None (occurrence: None)
  Receive Date: 20051223
  Receipt Date: 20051212
  Transmission Date: 20060501
  Serious: Yes (Death)
  Sender: FDA-Public Use
  Company Number: 02100-JPN-05-0599

PATIENT
  Age: 79 Year
  Sex: Male

DRUGS (4)
  1. CILOSTAZOL [Suspect]
     Indication: CEREBRAL INFARCTION
     Dosage: 200 MG ORAL
     Route: 048
     Dates: start: 20040829, end: 20050215
  2. CILOSTAZOL [Suspect]
     Indication: CEREBRAL THROMBOSIS
     Dosage: 200 MG ORAL
     Route: 048
     Dates: start: 20040829, end: 20050215
  3. FAMOTIDINE [Concomitant]
  4. NIFEDIPINE [Concomitant]

REACTIONS (2)
  - ANAEMIA [None]
  - SUDDEN DEATH [None]
